FAERS Safety Report 8406007-1 (Version None)
Quarter: 2012Q2

REPORT INFORMATION
  Report Type: 
  Country: None (occurrence: None)
  Receive Date: 20120529
  Receipt Date: 20000202
  Transmission Date: 20120825
  Serious: Yes (Hospitalization, Disabling, Other)
  Sender: FDA-Public Use
  Company Number: 02100-JPN-00-0006

PATIENT
  Age: 89 Year
  Sex: Male

DRUGS (11)
  1. BUFFERIN (ACETYLSALICYLIC ACID, MAGNESIUM CARBONATE, ALUMINIUM GLUCINA [Concomitant]
  2. VOLTAREN [Concomitant]
  3. PURSENNID (SENNA LEAF) [Concomitant]
  4. LAC B (CLACTOBACILLUS BIFIDUS, LYOPHILIZED) [Concomitant]
  5. WARFARIN SODIUM [Concomitant]
  6. METILON (METAMIZOLE SODIUM) [Concomitant]
  7. SERMION (NICERGOLINE) [Concomitant]
  8. PLETAL [Suspect]
     Indication: EXTREMITY NECROSIS
     Dosage: 100 MG, BID, ORAL
     Route: 048
     Dates: start: 19980315, end: 19991219
  9. PLETAL [Suspect]
     Indication: PERIPHERAL ARTERIAL OCCLUSIVE DISEASE
     Dosage: 100 MG, BID, ORAL
     Route: 048
     Dates: start: 19980315, end: 19991219
  10. PLETAL [Suspect]
     Indication: EXTREMITY NECROSIS
     Dosage: 100 MG, BID, ORAL
     Route: 048
     Dates: start: 20000119, end: 20000125
  11. PLETAL [Suspect]
     Indication: PERIPHERAL ARTERIAL OCCLUSIVE DISEASE
     Dosage: 100 MG, BID, ORAL
     Route: 048
     Dates: start: 20000119, end: 20000125

REACTIONS (9)
  - CALCULUS URINARY [None]
  - SEPTIC SHOCK [None]
  - RED BLOOD CELL COUNT DECREASED [None]
  - HAEMORRHAGE SUBCUTANEOUS [None]
  - ARTHRITIS BACTERIAL [None]
  - URINARY TRACT INFECTION [None]
  - IDIOPATHIC THROMBOCYTOPENIC PURPURA [None]
  - TOE AMPUTATION [None]
  - ESCHERICHIA SEPSIS [None]
